FAERS Safety Report 19987591 (Version 1)
Quarter: 2021Q4

REPORT INFORMATION
  Report Type: Spontaneous
  Country: ES (occurrence: ES)
  Receive Date: 20211022
  Receipt Date: 20211022
  Transmission Date: 20220303
  Serious: Yes (Other)
  Sender: FDA-Public Use
  Company Number: ES-GLAXOSMITHKLINE-ESCH2021EME073347

PATIENT
  Age: 54 Year
  Sex: Female

DRUGS (1)
  1. DICLOFENAC [Suspect]
     Active Substance: DICLOFENAC
     Indication: Vision blurred
     Dosage: 1 MG/ML, TID
     Route: 061

REACTIONS (3)
  - Exophthalmos [Unknown]
  - Visual acuity reduced [Unknown]
  - Conjunctival oedema [Unknown]
